FAERS Safety Report 4355261-4 (Version None)
Quarter: 2004Q2

REPORT INFORMATION
  Report Type: 
  Country: None (occurrence: None)
  Receive Date: 20040504
  Receipt Date: 20040419
  Transmission Date: 20050107
  Serious: Yes (Hospitalization)
  Sender: FDA-Public Use
  Company Number: B0330875A

PATIENT
  Age: 65 Year
  Sex: Female

DRUGS (1)
  1. LITHIUM CARBONATE [Suspect]
     Indication: HYPOMANIA
     Dosage: 1200 MG PER DAY

REACTIONS (7)
  - ATAXIA [None]
  - CHOREOATHETOSIS [None]
  - DISORIENTATION [None]
  - DYSKINESIA [None]
  - LOSS OF CONSCIOUSNESS [None]
  - RENAL IMPAIRMENT [None]
  - THERAPEUTIC AGENT TOXICITY [None]
